FAERS Safety Report 7565315-7 (Version None)
Quarter: 2011Q2

REPORT INFORMATION
  Report Type: 
  Country: None (occurrence: None)
  Receive Date: 20110623
  Receipt Date: 20110613
  Transmission Date: 20111010
  Serious: Yes (Death, Hospitalization)
  Sender: FDA-Public Use
  Company Number: US-BIOGENIDEC-2011BI019946

PATIENT
  Age: 56 Year
  Sex: Female

DRUGS (19)
  1. DIOVAN [Concomitant]
     Route: 048
  2. ZANTAC [Concomitant]
     Route: 048
  3. ALBUTEROL SULFATE AUTOHALER [Concomitant]
     Route: 055
  4. FOLTX (VITAMINS B6 AND B12 AND FOLIC ACID) [Concomitant]
     Route: 048
  5. ZINADERM [Concomitant]
     Route: 061
  6. CALCIUM CARBONATE [Concomitant]
     Route: 048
  7. TYSABRI [Suspect]
     Route: 042
     Dates: start: 20060926, end: 20090908
  8. NICOTINE PATCH [Concomitant]
     Indication: TOBACCO USER
     Route: 062
  9. BISACODYL SUPPOSITORY [Concomitant]
     Route: 054
  10. ESTROGEN-METHYLTEST [Concomitant]
     Route: 048
  11. TUSSIN [Concomitant]
     Route: 048
  12. PULMICORT [Concomitant]
     Route: 055
  13. MULTIVITAMIN WITH IRON [Concomitant]
  14. TYSABRI [Suspect]
     Indication: MULTIPLE SCLEROSIS
     Route: 042
     Dates: start: 20100209, end: 20100930
  15. SYNTHROID [Concomitant]
     Route: 048
  16. DILANTIN [Concomitant]
     Route: 048
  17. COLACE [Concomitant]
     Route: 048
  18. LEXAPRO [Concomitant]
     Route: 048
  19. JEVITY [Concomitant]
     Route: 048

REACTIONS (6)
  - HYPERTENSION [None]
  - ACUTE RESPIRATORY FAILURE [None]
  - NAUSEA [None]
  - PNEUMONIA ASPIRATION [None]
  - VOMITING [None]
  - HYPOKALAEMIA [None]
